FAERS Safety Report 9964117 (Version 1)
Quarter: 2014Q1

REPORT INFORMATION
  Report Type: Spontaneous
  Country: US (occurrence: US)
  Receive Date: 20140305
  Receipt Date: 20140305
  Transmission Date: 20141002
  Serious: No
  Sender: FDA-Public Use
  Company Number: US-BAYER-2014-031519

PATIENT
  Sex: Female
  Weight: 54 kg

DRUGS (3)
  1. BAYER EXTRA STRENGTH ASPIRIN [Suspect]
     Indication: ARTHRITIS
     Dosage: 2 DF, TID
     Route: 048
  2. BAYER EXTRA STRENGTH ASPIRIN [Suspect]
     Indication: ARTHRITIS
     Route: 048
  3. ALEVE CAPLET [Suspect]
     Indication: ARTHRITIS
     Dosage: UNK
     Route: 048

REACTIONS (2)
  - Drug ineffective [None]
  - Incorrect drug administration duration [None]
